FAERS Safety Report 7236994-9 (Version None)
Quarter: 2011Q1

REPORT INFORMATION
  Report Type: 
  Country: None (occurrence: None)
  Receive Date: 20110121
  Receipt Date: 20110111
  Transmission Date: 20110831
  Serious: No
  Sender: FDA-Public Use
  Company Number: US-BIOGENIDEC-2010BI038382

PATIENT
  Sex: Female

DRUGS (1)
  1. TYSABRI [Suspect]
     Indication: MULTIPLE SCLEROSIS
     Route: 042
     Dates: start: 20090320, end: 20100915

REACTIONS (5)
  - GASTROENTERITIS VIRAL [None]
  - HERPES ZOSTER [None]
  - FATIGUE [None]
  - SENSORY LOSS [None]
  - NAIL INJURY [None]
